FAERS Safety Report 20083925 (Version 1)
Quarter: 2021Q4

REPORT INFORMATION
  Report Type: Spontaneous
  Country: MA (occurrence: MA)
  Receive Date: 20211118
  Receipt Date: 20211118
  Transmission Date: 20220303
  Serious: Yes (Hospitalization, Other)
  Sender: FDA-Public Use
  Company Number: MA-SA-2021SA374453

PATIENT
  Age: 44 Year
  Sex: Male
  Weight: 46 kg

DRUGS (6)
  1. RIFAMPIN [Suspect]
     Active Substance: RIFAMPIN
     Indication: Tuberculous pleurisy
     Dosage: UNK
  2. ISONIAZID [Suspect]
     Active Substance: ISONIAZID
     Indication: Tuberculous pleurisy
     Dosage: UNK
  3. ETHAMBUTOL [Concomitant]
     Active Substance: ETHAMBUTOL HYDROCHLORIDE
     Indication: Tuberculous pleurisy
     Dosage: UNK
  4. ETHAMBUTOL [Concomitant]
     Active Substance: ETHAMBUTOL HYDROCHLORIDE
     Indication: Intervertebral discitis
     Dosage: UNK
     Route: 048
  5. PYRAZINAMIDE [Concomitant]
     Active Substance: PYRAZINAMIDE
     Indication: Tuberculous pleurisy
     Dosage: UNK
     Route: 048
  6. PYRAZINAMIDE [Concomitant]
     Active Substance: PYRAZINAMIDE
     Indication: Intervertebral discitis

REACTIONS (8)
  - Intervertebral discitis [Recovered/Resolved]
  - Back pain [Recovered/Resolved]
  - Tenderness [Recovered/Resolved]
  - Joint range of motion decreased [Recovered/Resolved]
  - Soft tissue infection [Recovered/Resolved]
  - Psoas abscess [Recovered/Resolved]
  - Vertebral lesion [Recovered/Resolved]
  - Drug resistance [Unknown]
